FAERS Safety Report 10743863 (Version 1)
Quarter: 2015Q1

REPORT INFORMATION
  Report Type: Spontaneous
  Country: US (occurrence: US)
  Receive Date: 20150128
  Receipt Date: 20150128
  Transmission Date: 20150721
  Serious: No
  Sender: FDA-Public Use
  Company Number: US-009507513-1501USA009705

PATIENT
  Age: 18 Year
  Sex: Female
  Weight: 77.98 kg

DRUGS (1)
  1. NEXPLANON [Suspect]
     Active Substance: ETONOGESTREL
     Indication: CONTRACEPTION
     Dosage: EVERY 3 YEARS, 1 ROD, LEFT ARM
     Route: 059
     Dates: start: 20141028

REACTIONS (4)
  - Alopecia [Unknown]
  - Polymenorrhoea [Unknown]
  - Acne [Unknown]
  - Headache [Unknown]

NARRATIVE: CASE EVENT DATE: 20141128
